FAERS Safety Report 5013286-X (Version None)
Quarter: 2006Q2

REPORT INFORMATION
  Report Type: 
  Country: None (occurrence: None)
  Receive Date: 20060530
  Receipt Date: 20060405
  Transmission Date: 20061013
  Serious: No
  Sender: FDA-Public Use
  Company Number: US-GLAXOSMITHKLINE-A0600581A

PATIENT
  Age: 44 Year
  Sex: Female

DRUGS (3)
  1. WELLBUTRIN XL [Suspect]
     Indication: DEPRESSION
     Dosage: 150MG TWICE PER DAY
     Route: 048
     Dates: start: 20060315, end: 20060404
  2. ADDERALL XR 10 [Concomitant]
     Dosage: 15MG IN THE MORNING
     Route: 048
  3. LEXAPRO [Concomitant]
     Dosage: 30MG PER DAY
     Route: 048

REACTIONS (3)
  - PRURITUS [None]
  - RASH [None]
  - SKIN DISCOLOURATION [None]
